FAERS Safety Report 8759565 (Version 1)
Quarter: 2012Q4

REPORT INFORMATION
  Report Type: 
  Country: US (occurrence: US)
  Receive Date: 20120829
  Receipt Date: 20120829
  Transmission Date: 20130627
  Serious: Yes (Hospitalization, Other)
  Sender: FDA-Public Use
  Company Number: PHEH2012US016503

PATIENT
  Age: 65 Year
  Sex: Female
  Weight: 77.1 kg

DRUGS (15)
  1. GILENYA [Suspect]
     Indication: MULTIPLE SCLEROSIS
     Dosage: 0.5 mg, QD
     Route: 048
     Dates: start: 20120821, end: 20120821
  2. OXYCONTIN [Concomitant]
  3. TOPIRAMATE [Concomitant]
  4. SERTRALINE [Concomitant]
  5. DILTIAZEM [Concomitant]
  6. OXYCODONE [Concomitant]
  7. MULTIVITAMIN [Concomitant]
  8. CALCIUM [Concomitant]
  9. FISH OIL [Concomitant]
  10. VITAMIN D [Concomitant]
  11. NIACIN [Concomitant]
  12. ACETYLSALICYLIC ACID [Concomitant]
  13. ANTIPSYCHOTICS [Concomitant]
  14. ANTIARRHYTHMICS, CLASS I AND III [Concomitant]
  15. CALCIUM CHANNEL BLOCKERS [Concomitant]

REACTIONS (6)
  - Bradycardia [Recovered/Resolved]
  - Dizziness [Recovered/Resolved]
  - Electrocardiogram QT prolonged [Unknown]
  - Pain in extremity [Not Recovered/Not Resolved]
  - Headache [Recovered/Resolved]
  - Dizziness postural [None]
